FAERS Safety Report 15699252 (Version 2)
Quarter: 2018Q4

REPORT INFORMATION
  Report Type: Spontaneous
  Country: US (occurrence: US)
  Receive Date: 20181207
  Receipt Date: 20181207
  Transmission Date: 20190205
  Serious: Yes (Other)
  Sender: FDA-Public Use
  Company Number: US-BAYER-2018-222939

PATIENT
  Sex: Female

DRUGS (2)
  1. MIRENA [Suspect]
     Active Substance: LEVONORGESTREL
     Indication: CONTRACEPTION
     Dosage: 20 MCG/24HR, CONT
     Route: 015
  2. KYLEENA [Suspect]
     Active Substance: LEVONORGESTREL
     Indication: CONTRACEPTION
     Dosage: 17.5 MCG/24HR, CONT
     Route: 015
     Dates: start: 201810

REACTIONS (8)
  - Amenorrhoea [None]
  - Anxiety [None]
  - Drug ineffective [None]
  - Menstrual disorder [None]
  - Genital haemorrhage [Recovered/Resolved]
  - Hypomenorrhoea [None]
  - Feeling abnormal [None]
  - Fatigue [None]
